FAERS Safety Report 15464942 (Version 1)
Quarter: 2018Q4

REPORT INFORMATION
  Report Type: Spontaneous
  Country: DE (occurrence: DE)
  Receive Date: 20181004
  Receipt Date: 20181004
  Transmission Date: 20190204
  Serious: Yes (Hospitalization)
  Sender: FDA-Public Use
  Company Number: DE-TEVA-2018-DE-960874

PATIENT
  Age: 64 Year
  Sex: Female
  Weight: 60 kg

DRUGS (17)
  1. DEXAMETHASONE. [Suspect]
     Active Substance: DEXAMETHASONE
     Route: 065
     Dates: start: 20140310, end: 20140319
  2. IBUPROFEN. [Concomitant]
     Active Substance: IBUPROFEN
     Indication: PAIN
     Dosage: 800 MILLIGRAM DAILY; 800 MILLIGRAM
     Route: 048
     Dates: start: 20140130
  3. POMALIDOMIDE [Suspect]
     Active Substance: POMALIDOMIDE
     Route: 048
     Dates: start: 20140401, end: 20140421
  4. POMALIDOMIDE [Suspect]
     Active Substance: POMALIDOMIDE
     Route: 048
     Dates: start: 20140312, end: 20140331
  5. PANTOPRAZOL BETA [Concomitant]
     Indication: GASTRITIS PROPHYLAXIS
     Dosage: 20 MILLIGRAM DAILY; 20 MILLIGRAM
     Route: 048
     Dates: start: 20140310
  6. BONDRONAT [Concomitant]
     Active Substance: IBANDRONATE SODIUM
     Indication: OSTEOLYSIS
     Dosage: 6 MILLIGRAM
     Route: 041
     Dates: start: 20061213, end: 20140623
  7. POMALIDOMIDE [Suspect]
     Active Substance: POMALIDOMIDE
     Route: 048
     Dates: start: 20140331, end: 20140714
  8. FENTANYL-RATIOPHARM [Concomitant]
     Indication: PAIN
     Dosage: 50 MICROGRAM DAILY; 50 MICROGRAM
     Route: 062
     Dates: start: 20140310
  9. DEXAMETHASONE. [Suspect]
     Active Substance: DEXAMETHASONE
     Route: 065
     Dates: start: 20140624, end: 20140715
  10. MOVICOL [Concomitant]
     Active Substance: POLYETHYLENE GLYCOL 3350\POTASSIUM CHLORIDE\SODIUM BICARBONATE\SODIUM CHLORIDE
     Indication: PRODUCT USED FOR UNKNOWN INDICATION
     Route: 048
     Dates: start: 20080214
  11. MIRTAZAPIN BETA [Concomitant]
     Indication: PAIN
     Dosage: 15 MILLIGRAM DAILY; 15 MILLIGRAM
     Route: 048
     Dates: start: 20120821
  12. MOVICOL [Concomitant]
     Active Substance: POLYETHYLENE GLYCOL 3350\POTASSIUM CHLORIDE\SODIUM BICARBONATE\SODIUM CHLORIDE
     Indication: PRODUCT USED FOR UNKNOWN INDICATION
     Route: 048
     Dates: start: 20080214
  13. OXYGESIC [Concomitant]
     Active Substance: OXYCODONE
     Indication: PAIN
     Dosage: 20 MILLIGRAM
     Route: 048
     Dates: start: 20140507
  14. LYRICA [Concomitant]
     Active Substance: PREGABALIN
     Indication: PAIN
     Dosage: 75 MILLIGRAM DAILY; 150 MILLIGRAM
     Route: 048
     Dates: start: 20130204
  15. ASA [Concomitant]
     Active Substance: ASPIRIN
     Indication: THROMBOSIS
     Dosage: 100 MILLIGRAM DAILY; 100 MILLIGRAM
     Route: 048
     Dates: start: 20120312
  16. EXINEF [Concomitant]
     Active Substance: ETORICOXIB
     Indication: PAIN
     Dosage: 90 MILLIGRAM DAILY; 90 MILLIGRAM
     Route: 048
     Dates: start: 20131125
  17. CALCIMAGON [Concomitant]
     Active Substance: CALCIUM
     Indication: OSTEOLYSIS
     Dosage: 100 MILLIGRAM DAILY; 200 MILLIGRAM
     Route: 048
     Dates: start: 20120518

REACTIONS (4)
  - Constipation [Recovered/Resolved]
  - Nausea [Recovered/Resolved]
  - Vomiting [Recovered/Resolved]
  - General physical health deterioration [Recovered/Resolved]

NARRATIVE: CASE EVENT DATE: 20140722
